FAERS Safety Report 8433220-X (Version None)
Quarter: 2012Q2

REPORT INFORMATION
  Report Type: 
  Country: None (occurrence: None)
  Receive Date: 20120613
  Receipt Date: 20120608
  Transmission Date: 20120825
  Serious: Yes (Life-Threatening, Hospitalization)
  Sender: FDA-Public Use
  Company Number: DE-GLAXOSMITHKLINE-B0807463A

PATIENT
  Sex: Female
  Weight: 83 kg

DRUGS (9)
  1. VENLAFAXINE HYDROCHLORIDE [Concomitant]
     Dates: start: 20100317
  2. PACLITAXEL [Suspect]
     Indication: BREAST CANCER
     Dosage: 111MG WEEKLY
     Route: 042
     Dates: start: 20120314
  3. RAMIPRIL [Concomitant]
     Dates: start: 20100317
  4. TRASTUZUMAB [Suspect]
     Indication: BREAST CANCER
     Dosage: 498MG EVERY 3 WEEKS
     Route: 042
     Dates: start: 20120314
  5. DOXORUBICIN HCL [Suspect]
     Indication: BREAST CANCER
     Dosage: 2775MG WEEKLY
     Route: 042
     Dates: start: 20120314
  6. LAPATINIB [Suspect]
     Indication: BREAST CANCER
     Dosage: 500MG PER DAY
     Route: 048
     Dates: start: 20120314
  7. ARANESP [Concomitant]
     Dosage: 300UG WEEKLY
     Dates: start: 20120523
  8. CARBOPLATIN [Suspect]
     Indication: BREAST CANCER
     Dosage: 3247MG WEEKLY
     Route: 042
     Dates: start: 20120314
  9. METOPROLOL TARTRATE [Concomitant]
     Dosage: 71.25MG PER DAY
     Dates: start: 20100317

REACTIONS (1)
  - PANCYTOPENIA [None]
